FAERS Safety Report 9686844 (Version 2)
Quarter: 2013Q4

REPORT INFORMATION
  Report Type: Spontaneous
  Country: US (occurrence: US)
  Receive Date: 20131113
  Receipt Date: 20131212
  Transmission Date: 20140711
  Serious: Yes (Other)
  Sender: FDA-Public Use
  Company Number: US-PFIZER INC-2013322772

PATIENT
  Age: 53 Year
  Sex: Female

DRUGS (12)
  1. CHANTIX [Suspect]
     Indication: EX-TOBACCO USER
     Dosage: 0.5 MG, 2X/DAY
     Route: 048
     Dates: start: 20131011
  2. CHANTIX [Suspect]
     Indication: SMOKING CESSATION THERAPY
  3. ADVAIR [Suspect]
     Indication: ASTHMA
     Dosage: FLUTICASONE PROPIONATE 250MCG/ SALMETEROL XINAFOATE 50MCG; 1 PUFF TWICE PER DAY/ INHALED
     Route: 055
     Dates: start: 20130929
  4. PRO-AIR [Concomitant]
     Dosage: UNK
  5. THYROXINE SODIUM [Concomitant]
     Dosage: UNK
  6. CLONAZEPAM [Concomitant]
     Dosage: UNK
  7. SOMA [Concomitant]
     Dosage: UNK
  8. AMLODIPINE [Concomitant]
     Dosage: UNK
  9. AMLODIPINE BESILATE/ATORVASTATIN CALCIUM [Concomitant]
     Dosage: UNK
  10. NORCO [Concomitant]
     Dosage: UNK
  11. FLUTICASONE PROPIONATE [Concomitant]
     Dosage: UNK
  12. CETIRIZINE HYDROCHLORIDE [Concomitant]
     Dosage: UNK

REACTIONS (10)
  - Dysgeusia [Not Recovered/Not Resolved]
  - Dry mouth [Not Recovered/Not Resolved]
  - Tongue disorder [Not Recovered/Not Resolved]
  - Lymphadenopathy [Not Recovered/Not Resolved]
  - Oral disorder [Not Recovered/Not Resolved]
  - Throat lesion [Not Recovered/Not Resolved]
  - Candida infection [Unknown]
  - Oral mucosal blistering [Unknown]
  - Oropharyngeal blistering [Unknown]
  - Tongue blistering [Unknown]
